FAERS Safety Report 8154417-2 (Version None)
Quarter: 2012Q1

REPORT INFORMATION
  Report Type: 
  Country: None (occurrence: None)
  Receive Date: 20120103
  Receipt Date: 20110921
  Transmission Date: 20120608
  Serious: No
  Sender: FDA-Public Use
  Company Number: AE-2011-000937

PATIENT
  Age: 58 Year
  Sex: Male
  Weight: 75.7507 kg

DRUGS (8)
  1. OMEPRAZOLE [Concomitant]
  2. SYNTHROID [Concomitant]
  3. CENTRUM SILVER (CENTRUM SILVER) [Concomitant]
  4. RIBAVIRIN [Concomitant]
  5. CHLOROCOL [Concomitant]
  6. PEGASYS [Concomitant]
  7. ACETAMINOPHEN [Concomitant]
  8. INCIVEK [Suspect]
     Dosage: 2250 MG (750 MG, 1 IN 8 HR)
     Dates: start: 20110627, end: 20110918

REACTIONS (4)
  - FEAR OF EATING [None]
  - FAECALOMA [None]
  - DIARRHOEA [None]
  - ANORECTAL DISCOMFORT [None]
